FAERS Safety Report 5262634-4 (Version None)
Quarter: 2007Q1

REPORT INFORMATION
  Report Type: 
  Country: None (occurrence: None)
  Receive Date: 20070312
  Receipt Date: 20070301
  Transmission Date: 20070707
  Serious: Yes (Other)
  Sender: FDA-Public Use
  Company Number: GB-AMGEN-UK198645

PATIENT
  Age: 54 Year
  Sex: Male
  Weight: 68 kg

DRUGS (6)
  1. MIMPARA [Suspect]
     Indication: HYPERPARATHYROIDISM PRIMARY
     Route: 065
  2. LOSARTAN POSTASSIUM [Concomitant]
  3. DIGOXIN [Concomitant]
  4. SPIRONOLACTONE [Concomitant]
  5. BUMETANIDE [Concomitant]
  6. GLICLAZIDE [Concomitant]

REACTIONS (1)
  - CARDIAC FAILURE [None]
